FAERS Safety Report 20536139 (Version 6)
Quarter: 2023Q1

REPORT INFORMATION
  Report Type: Spontaneous
  Country: US (occurrence: US)
  Receive Date: 20220302
  Receipt Date: 20230316
  Transmission Date: 20230418
  Serious: Yes (Hospitalization, Disabling, Other)
  Sender: FDA-Public Use
  Company Number: US-ORGANON-O2202USA002344

PATIENT
  Sex: Female

DRUGS (3)
  1. SINGULAIR [Suspect]
     Active Substance: MONTELUKAST SODIUM
     Indication: Asthma
     Dosage: 5 MILLIGRAM
     Route: 048
     Dates: start: 1998
  2. SINGULAIR [Suspect]
     Active Substance: MONTELUKAST SODIUM
     Dosage: 10 MILLIGRAM
     Route: 048
  3. SINGULAIR [Suspect]
     Active Substance: MONTELUKAST SODIUM
     Dosage: 15 MILLIGRAM
     Route: 048
     Dates: end: 2003

REACTIONS (36)
  - Bipolar disorder [Unknown]
  - Neuropsychiatric symptoms [Not Recovered/Not Resolved]
  - Intentional self-injury [Not Recovered/Not Resolved]
  - Anxiety [Not Recovered/Not Resolved]
  - Suicidal ideation [Not Recovered/Not Resolved]
  - Depression [Not Recovered/Not Resolved]
  - Suicide attempt [Unknown]
  - Intentional self-injury [Unknown]
  - Mental disorder [Not Recovered/Not Resolved]
  - Asthma [Not Recovered/Not Resolved]
  - Obesity [Not Recovered/Not Resolved]
  - Gastric perforation [Unknown]
  - Metabolic surgery [Not Recovered/Not Resolved]
  - Gastric bypass [Unknown]
  - Hypothyroidism [Not Recovered/Not Resolved]
  - Non-alcoholic steatohepatitis [Not Recovered/Not Resolved]
  - Cholecystectomy [Recovered/Resolved]
  - Intestinal perforation [Not Recovered/Not Resolved]
  - Polycystic ovaries [Unknown]
  - Borderline personality disorder [Not Recovered/Not Resolved]
  - Obstructive sleep apnoea syndrome [Not Recovered/Not Resolved]
  - Polycystic ovaries [Not Recovered/Not Resolved]
  - Malabsorption [Not Recovered/Not Resolved]
  - Corrective lens user [Not Recovered/Not Resolved]
  - Dermatitis [Not Recovered/Not Resolved]
  - Eczema [Not Recovered/Not Resolved]
  - Post inflammatory pigmentation change [Not Recovered/Not Resolved]
  - Migraine with aura [Not Recovered/Not Resolved]
  - Wound dehiscence [Not Recovered/Not Resolved]
  - Malnutrition [Not Recovered/Not Resolved]
  - Abdominal hernia [Not Recovered/Not Resolved]
  - Carpal tunnel syndrome [Not Recovered/Not Resolved]
  - Incisional hernia [Not Recovered/Not Resolved]
  - Wound infection [Not Recovered/Not Resolved]
  - Procedural pain [Not Recovered/Not Resolved]
  - Post procedural complication [Unknown]

NARRATIVE: CASE EVENT DATE: 19980101
